FAERS Safety Report 17136801 (Version 1)
Quarter: 2019Q4

REPORT INFORMATION
  Report Type: Report from Study
  Country: GB (occurrence: GB)
  Receive Date: 20191210
  Receipt Date: 20191210
  Transmission Date: 20200122
  Serious: Yes (Other)
  Sender: FDA-Public Use
  Company Number: PHHY2015GB107248

PATIENT
  Age: 46 Year
  Sex: Female

DRUGS (1)
  1. GILENYA [Suspect]
     Active Substance: FINGOLIMOD HYDROCHLORIDE
     Indication: MULTIPLE SCLEROSIS
     Dosage: QD
     Route: 048
     Dates: start: 20131106, end: 201606

REACTIONS (18)
  - Coordination abnormal [Unknown]
  - Cluster headache [Unknown]
  - Fatigue [Unknown]
  - Uterine leiomyoma [Unknown]
  - Vaginal haemorrhage [Unknown]
  - Hallucination [Unknown]
  - Muscular weakness [Unknown]
  - White blood cell count decreased [Unknown]
  - Neuralgia [Unknown]
  - Benign neoplasm of thyroid gland [Unknown]
  - Lymphocyte count decreased [Recovered/Resolved]
  - Alanine aminotransferase increased [Recovered/Resolved]
  - Renal colic [Recovered/Resolved]
  - Dysphonia [Unknown]
  - Limb discomfort [Unknown]
  - Depressed mood [Unknown]
  - Back pain [Unknown]
  - Tenosynovitis stenosans [Unknown]

NARRATIVE: CASE EVENT DATE: 20150325
